FAERS Safety Report 25918850 (Version 1)
Quarter: 2025Q4

REPORT INFORMATION
  Report Type: Report from Study
  Country: US (occurrence: US)
  Receive Date: 20251014
  Receipt Date: 20251014
  Transmission Date: 20260118
  Serious: Yes (Hospitalization, Other)
  Sender: ABBVIE
  Company Number: US-ABBVIE-6499016

PATIENT
  Age: 64 Year
  Sex: Male

DRUGS (2)
  1. HUMIRA [Suspect]
     Active Substance: ADALIMUMAB
     Indication: Psoriatic arthropathy
     Route: 058
     Dates: start: 20110601
  2. HUMIRA [Suspect]
     Active Substance: ADALIMUMAB
     Route: 058
     Dates: start: 2005

REACTIONS (7)
  - Road traffic accident [Recovered/Resolved]
  - Clavicle fracture [Unknown]
  - Rib fracture [Unknown]
  - Lower limb fracture [Unknown]
  - Splenic rupture [Unknown]
  - Psoriatic arthropathy [Unknown]
  - Hand fracture [Unknown]

NARRATIVE: CASE EVENT DATE: 20210101
